FAERS Safety Report 12651199 (Version 1)
Quarter: 2016Q3

REPORT INFORMATION
  Report Type: Spontaneous
  Country: US (occurrence: None)
  Receive Date: 20160812
  Receipt Date: 20160812
  Transmission Date: 20161109
  Serious: Yes (Death, Hospitalization)
  Sender: FDA-Public Use
  Company Number: None

PATIENT
  Age: 49 Year
  Sex: Female
  Weight: 82 kg

DRUGS (3)
  1. DOXORUBICIN HYDROCHLORIDE. [Suspect]
     Active Substance: DOXORUBICIN HYDROCHLORIDE
     Dates: end: 20061212
  2. TAXOTERE [Suspect]
     Active Substance: DOCETAXEL
     Dates: end: 20061212
  3. CYCLOPHOSPHAMIDE. [Suspect]
     Active Substance: CYCLOPHOSPHAMIDE
     Dates: end: 20061212

REACTIONS (11)
  - Metastases to bone [None]
  - Malignant neoplasm progression [None]
  - Pancytopenia [None]
  - Respiratory failure [None]
  - Lymphadenopathy [None]
  - Malnutrition [None]
  - Metastases to liver [None]
  - Acute kidney injury [None]
  - Drug hypersensitivity [None]
  - Myelodysplastic syndrome [None]
  - Cachexia [None]

NARRATIVE: CASE EVENT DATE: 20141027
